FAERS Safety Report 19827916 (Version 1)
Quarter: 2021Q3

REPORT INFORMATION
  Report Type: Spontaneous
  Country: US (occurrence: US)
  Receive Date: 20210914
  Receipt Date: 20210914
  Transmission Date: 20211014
  Serious: Yes (Other)
  Sender: FDA-Public Use
  Company Number: US-MYLANLABS-2021M1060836

PATIENT
  Age: 8 Year
  Sex: Male

DRUGS (3)
  1. ARGININE PYROGLUTAMATE W/LYSINE HYDROCHLORIDE [Concomitant]
     Indication: RENAL DISORDER PROPHYLAXIS
     Dosage: DILUTED CLINISOL WITH SODIUM CHLORIDE TO 12%..
     Route: 065
  2. SANDOSTATIN LAR DEPOT [Concomitant]
     Active Substance: OCTREOTIDE ACETATE
     Indication: PANCREATIC NEUROENDOCRINE TUMOUR METASTATIC
     Dosage: 10 MILLIGRAM
     Route: 030
  3. EVEROLIMUS. [Suspect]
     Active Substance: EVEROLIMUS
     Indication: PANCREATIC NEUROENDOCRINE TUMOUR METASTATIC
     Dosage: 5 MILLIGRAM, QD
     Route: 048

REACTIONS (2)
  - Drug ineffective for unapproved indication [Unknown]
  - Off label use [Unknown]
